FAERS Safety Report 20389141 (Version 2)
Quarter: 2022Q3

REPORT INFORMATION
  Report Type: Spontaneous
  Country: US (occurrence: None)
  Receive Date: 20220128
  Receipt Date: 20220715
  Transmission Date: 20221027
  Serious: Yes (Other)
  Sender: FDA-Public Use
  Company Number: 2022A038825

PATIENT
  Age: 42 Year
  Sex: Female
  Weight: 90.7 kg

DRUGS (43)
  1. PRILOSEC [Suspect]
     Active Substance: OMEPRAZOLE MAGNESIUM
     Indication: Gastrooesophageal reflux disease
     Route: 048
     Dates: start: 2014, end: 2021
  2. PRILOSEC [Suspect]
     Active Substance: OMEPRAZOLE MAGNESIUM
     Indication: Gastrooesophageal reflux disease
     Dosage: GENERIC20.0MG UNKNOWN
     Route: 065
     Dates: start: 2014, end: 2015
  3. PRILOSEC [Suspect]
     Active Substance: OMEPRAZOLE MAGNESIUM
     Indication: Gastrooesophageal reflux disease
     Dosage: GENERIC20.0MG UNKNOWN
     Route: 065
     Dates: start: 2020
  4. PRILOSEC [Suspect]
     Active Substance: OMEPRAZOLE MAGNESIUM
     Indication: Gastrooesophageal reflux disease
     Dosage: 20.0MG UNKNOWN
     Route: 048
     Dates: start: 202001, end: 20201216
  5. PRILOSEC OTC [Suspect]
     Active Substance: OMEPRAZOLE MAGNESIUM
     Indication: Gastrooesophageal reflux disease
     Route: 048
     Dates: start: 2014, end: 2021
  6. PRILOSEC OTC [Suspect]
     Active Substance: OMEPRAZOLE MAGNESIUM
     Indication: Gastrooesophageal reflux disease
     Dosage: 40.0MG UNKNOWN
     Route: 048
     Dates: start: 2014
  7. PROTONIX [Suspect]
     Active Substance: PANTOPRAZOLE SODIUM
     Indication: Gastrooesophageal reflux disease
     Route: 065
     Dates: start: 2014, end: 2021
  8. PROTONIX [Suspect]
     Active Substance: PANTOPRAZOLE SODIUM
     Indication: Gastrooesophageal reflux disease
     Dosage: 40.0MG UNKNOWN
     Route: 065
     Dates: start: 2020, end: 2021
  9. PROTONIX [Suspect]
     Active Substance: PANTOPRAZOLE SODIUM
     Indication: Gastrooesophageal reflux disease
     Dosage: GENERIC40.0MG UNKNOWN
     Route: 065
     Dates: start: 2014, end: 2015
  10. ACYCLOVIR [Concomitant]
     Active Substance: ACYCLOVIR
  11. AMOXICILLIN\CLAVULANATE POTASSIUM [Concomitant]
     Active Substance: AMOXICILLIN\CLAVULANATE POTASSIUM
  12. IBUPROFEN [Concomitant]
     Active Substance: IBUPROFEN
  13. METHYLPREDNISOLONE [Concomitant]
     Active Substance: METHYLPREDNISOLONE
  14. TRIAMCINOLONE [Concomitant]
     Active Substance: TRIAMCINOLONE
  15. VITAMIN D3 [Concomitant]
     Active Substance: CHOLECALCIFEROL
  16. HYDROCHLOROTHIAZDE [Concomitant]
  17. FUROSEMIDE [Concomitant]
     Active Substance: FUROSEMIDE
  18. NAPROXEN [Concomitant]
     Active Substance: NAPROXEN
  19. CIIPROFLOXACIN [Concomitant]
  20. CEPHALEXIN [Concomitant]
     Active Substance: CEPHALEXIN
  21. SIMETHICONE (DIMETHICONE) [Concomitant]
     Active Substance: DIMETHICONE
  22. POLYETHYLENE GLYCOL [Concomitant]
     Active Substance: POLYETHYLENE GLYCOL
  23. LOTRIMIN [Concomitant]
     Active Substance: CLOTRIMAZOLE
  24. CYCLOBENZAPRINE [Concomitant]
     Active Substance: CYCLOBENZAPRINE
  25. HYGROTON [Concomitant]
     Active Substance: CHLORTHALIDONE
  26. POTASSIUM CHLORIDE [Concomitant]
     Active Substance: POTASSIUM CHLORIDE
  27. NORTRIPTYLINE [Concomitant]
     Active Substance: NORTRIPTYLINE
  28. LIDOCAINE [Concomitant]
     Active Substance: LIDOCAINE
  29. PROPOFOL [Concomitant]
     Active Substance: PROPOFOL
  30. MAXITROL [Concomitant]
     Active Substance: DEXAMETHASONE\NEOMYCIN SULFATE\POLYMYXIN B SULFATE
  31. BENZONATATE [Concomitant]
     Active Substance: BENZONATATE
  32. SODIUM CHLORIDE [Concomitant]
     Active Substance: SODIUM CHLORIDE
  33. SUCRALFATE [Concomitant]
     Active Substance: SUCRALFATE
  34. OXYBUTYNIN [Concomitant]
     Active Substance: OXYBUTYNIN
  35. COLACE [Concomitant]
     Active Substance: DOCUSATE SODIUM
  36. TYLENOL [Concomitant]
     Active Substance: ACETAMINOPHEN
  37. BIAXIN [Concomitant]
     Active Substance: CLARITHROMYCIN
  38. LACTATED RINGERS SOLUTION [Concomitant]
     Active Substance: CALCIUM CHLORIDE\POTASSIUM CHLORIDE\SODIUM CHLORIDE\SODIUM LACTATE
  39. METOCLOPRAMIDE [Concomitant]
     Active Substance: METOCLOPRAMIDE
  40. FENTANYL [Concomitant]
     Active Substance: FENTANYL
  41. HYDROMORPHONE [Concomitant]
     Active Substance: HYDROMORPHONE
  42. PHENAZOPYRIDINE [Concomitant]
     Active Substance: PHENAZOPYRIDINE
  43. HEPARIN [Concomitant]
     Active Substance: HEPARIN SODIUM

REACTIONS (2)
  - Chronic kidney disease [Not Recovered/Not Resolved]
  - Acute kidney injury [Not Recovered/Not Resolved]

NARRATIVE: CASE EVENT DATE: 20150101
